FAERS Safety Report 14773334 (Version 1)
Quarter: 2018Q2

REPORT INFORMATION
  Report Type: Spontaneous
  Country: US (occurrence: US)
  Receive Date: 20180418
  Receipt Date: 20180418
  Transmission Date: 20180711
  Serious: No
  Sender: FDA-Public Use
  Company Number: US-ELI_LILLY_AND_COMPANY-US201804006562

PATIENT

DRUGS (1)
  1. FORTEO [Suspect]
     Active Substance: TERIPARATIDE
     Indication: PRODUCT USED FOR UNKNOWN INDICATION
     Dosage: UNK UNK, UNKNOWN
     Route: 065
     Dates: start: 2014

REACTIONS (7)
  - Feeling abnormal [Unknown]
  - Fibula fracture [Unknown]
  - Food allergy [Unknown]
  - Incorrect drug administration duration [Not Recovered/Not Resolved]
  - Cardiac disorder [Unknown]
  - Foot fracture [Unknown]
  - Body height decreased [Recovered/Resolved]

NARRATIVE: CASE EVENT DATE: 2014
